FAERS Safety Report 8996532 (Version 2)
Quarter: 2013Q1

REPORT INFORMATION
  Report Type: Spontaneous
  Country: US (occurrence: US)
  Receive Date: 20130104
  Receipt Date: 20130118
  Transmission Date: 20140127
  Serious: No
  Sender: FDA-Public Use
  Company Number: US-PFIZER INC-2012333960

PATIENT
  Age: 70 Year
  Sex: Male

DRUGS (2)
  1. XALKORI [Suspect]
     Indication: LUNG NEOPLASM MALIGNANT
     Dosage: 250 MG (FREQUENCY UNSPECIFIED)
     Route: 048
     Dates: start: 20120726
  2. SYNTHROID [Concomitant]
     Dosage: UNK

REACTIONS (1)
  - Visual impairment [Not Recovered/Not Resolved]
